FAERS Safety Report 21452887 (Version 1)
Quarter: 2022Q4

REPORT INFORMATION
  Report Type: Spontaneous
  Country: FR (occurrence: FR)
  Receive Date: 20221013
  Receipt Date: 20221013
  Transmission Date: 20230113
  Serious: Yes (Hospitalization, Other)
  Sender: FDA-Public Use
  Company Number: None

PATIENT
  Age: 53 Year
  Sex: Female
  Weight: 96 kg

DRUGS (3)
  1. PERJETA [Suspect]
     Active Substance: PERTUZUMAB
     Indication: Invasive ductal breast carcinoma
     Route: 065
     Dates: start: 20220425, end: 20220811
  2. TAXOL [Suspect]
     Active Substance: PACLITAXEL
     Indication: Invasive ductal breast carcinoma
     Route: 065
     Dates: start: 20220425, end: 20220721
  3. HERCEPTIN [Suspect]
     Active Substance: TRASTUZUMAB
     Indication: Invasive ductal breast carcinoma
     Route: 065
     Dates: start: 20220425, end: 20220811

REACTIONS (2)
  - Interstitial lung disease [Not Recovered/Not Resolved]
  - Neuropathy peripheral [Not Recovered/Not Resolved]

NARRATIVE: CASE EVENT DATE: 20220701
